FAERS Safety Report 8756298 (Version 2)
Quarter: 2012Q4

REPORT INFORMATION
  Report Type: 
  Country: PE (occurrence: PE)
  Receive Date: 20120828
  Receipt Date: 20121031
  Transmission Date: 20130627
  Serious: Yes (Hospitalization, Other)
  Sender: FDA-Public Use
  Company Number: PE-JNJFOC-20120810923

PATIENT
  Age: 51 Year
  Sex: Female

DRUGS (2)
  1. REMICADE [Suspect]
     Indication: PRODUCT USED FOR UNKNOWN INDICATION
     Route: 042
     Dates: start: 20120821
  2. INSULIN [Suspect]
     Indication: DIABETES MELLITUS
     Route: 065

REACTIONS (5)
  - Hypoglycaemia [Unknown]
  - Respiratory distress [Unknown]
  - Tachycardia [Unknown]
  - Hypotension [Unknown]
  - Infusion related reaction [Unknown]
